FAERS Safety Report 8511801-2 (Version None)
Quarter: 2012Q3

REPORT INFORMATION
  Report Type: 
  Country: None (occurrence: None)
  Receive Date: 20120716
  Receipt Date: 20070226
  Transmission Date: 20120928
  Serious: Yes (Other)
  Sender: FDA-Public Use
  Company Number: CO-PFIZER INC-2012169616

PATIENT
  Age: 63 Year
  Sex: Female

DRUGS (8)
  1. ACURETIC [Suspect]
     Dosage: 20MG/ 12.5MG, 1X/DAY
  2. METFORMIN [Concomitant]
     Dosage: 850 MG, 1X/DAY
  3. LIPITOR [Suspect]
     Dosage: 10 MG, 2X/DAY
  4. METFORMIN [Concomitant]
     Dosage: 850 MG, 2X/DAY
  5. GLIBENCLAMIDE [Concomitant]
     Dosage: 5 MG, 2X/DAY
  6. GLIBENCLAMIDE [Concomitant]
     Dosage: 5 MG, 1X/DAY
  7. LIPITOR [Suspect]
     Dosage: 10 MG, 1X/DAY
  8. CIPROFLOXACIN HYDROCHLORIDE [Concomitant]
     Dosage: 500 MG, 2X/DAY

REACTIONS (9)
  - ACUTE MYOCARDIAL INFARCTION [None]
  - URINARY TRACT INFECTION [None]
  - TYPE V HYPERLIPIDAEMIA [None]
  - DYSPNOEA [None]
  - HEADACHE [None]
  - DYSURIA [None]
  - RENAL FAILURE CHRONIC [None]
  - PAIN IN EXTREMITY [None]
  - PARAESTHESIA [None]
